FAERS Safety Report 15149650 (Version 2)
Quarter: 2019Q2

REPORT INFORMATION
  Report Type: Spontaneous
  Country: US (occurrence: US)
  Receive Date: 20180716
  Receipt Date: 20190401
  Transmission Date: 20190711
  Serious: No
  Sender: FDA-Public Use
  Company Number: US-VANDA PHARMACEUTICALS, INC-2018TASUS002047

PATIENT
  Age: 61 Year
  Sex: Male

DRUGS (3)
  1. HETLIOZ [Suspect]
     Active Substance: TASIMELTEON
     Indication: NON-24-HOUR SLEEP-WAKE DISORDER
     Dosage: 20 MG, ONCE DAILY
     Route: 048
     Dates: start: 20171215, end: 20180426
  2. ADDERALL [Concomitant]
     Active Substance: AMPHETAMINE ASPARTATE\AMPHETAMINE SULFATE\DEXTROAMPHETAMINE SACCHARATE\DEXTROAMPHETAMINE SULFATE
     Indication: PRODUCT USED FOR UNKNOWN INDICATION
  3. ATENOLOL. [Interacting]
     Active Substance: ATENOLOL
     Indication: PRODUCT USED FOR UNKNOWN INDICATION
     Dosage: UNK

REACTIONS (3)
  - Feeling abnormal [Recovered/Resolved]
  - Drug ineffective [Unknown]
  - Drug interaction [Recovered/Resolved]
